FAERS Safety Report 6428881-0 (Version None)
Quarter: 2009Q4

REPORT INFORMATION
  Report Type: 
  Country: None (occurrence: None)
  Receive Date: 20091104
  Receipt Date: 20091104
  Transmission Date: 20100525
  Serious: Yes (Other)
  Sender: FDA-Public Use
  Company Number: None

PATIENT
  Age: 21 Year
  Sex: Male
  Weight: 81.6475 kg

DRUGS (1)
  1. CHLORPHENIRAMINE TAB [Suspect]
     Indication: INFLUENZA LIKE ILLNESS
     Dosage: DOES NOT SY, 1 EVERY 4-6 HOURS
     Dates: start: 20091030, end: 20091101

REACTIONS (1)
  - DYSURIA [None]
